FAERS Safety Report 11579114 (Version 7)
Quarter: 2016Q1

REPORT INFORMATION
  Report Type: Report from Study
  Country: CA (occurrence: CA)
  Receive Date: 20150930
  Receipt Date: 20160304
  Transmission Date: 20160525
  Serious: Yes (Hospitalization, Other)
  Sender: FDA-Public Use
  Company Number: CA-UCBSA-2015030468

PATIENT
  Age: 62 Year
  Sex: Male
  Weight: 156.9 kg

DRUGS (8)
  1. CERTOLIZUMAB PEGOL RA [Suspect]
     Active Substance: CERTOLIZUMAB PEGOL
     Dosage: 200 MG, EV 2 WEEKS(QOW)
     Route: 058
     Dates: start: 20150803, end: 20150908
  2. CLOXACILLIN [Concomitant]
     Active Substance: CLOXACILLIN
     Indication: WOUND INFECTION
  3. CERTOLIZUMAB PEGOL RA [Suspect]
     Active Substance: CERTOLIZUMAB PEGOL
     Dosage: 200 MG, EV 2 WEEKS(QOW)
     Route: 058
     Dates: start: 20151218, end: 20151228
  4. CERTOLIZUMAB PEGOL RA [Suspect]
     Active Substance: CERTOLIZUMAB PEGOL
     Dosage: 200 MG, EV 2 WEEKS(QOW)
     Route: 058
     Dates: start: 20140527, end: 20150701
  5. CERTOLIZUMAB PEGOL RA [Suspect]
     Active Substance: CERTOLIZUMAB PEGOL
     Indication: RHEUMATOID ARTHRITIS
     Dosage: 400 MG, EV 2 WEEKS(QOW) X 3
     Route: 058
     Dates: start: 20140415, end: 20140513
  6. PROFERRIN [Concomitant]
     Indication: ANAEMIA
     Dosage: 11 MG, 3X/DAY (TID)
     Route: 048
     Dates: start: 20140929
  7. CLOXACILLIN [Concomitant]
     Active Substance: CLOXACILLIN
     Indication: SEPSIS
     Dosage: EVERY HOUR
     Dates: start: 20150815
  8. PLAQUENIL [Concomitant]
     Active Substance: HYDROXYCHLOROQUINE SULFATE
     Indication: PRODUCT USED FOR UNKNOWN INDICATION
     Dosage: UNK

REACTIONS (8)
  - Pneumonia [Recovered/Resolved]
  - Fall [Unknown]
  - Myalgia [Unknown]
  - Rib fracture [Unknown]
  - Wound infection [Recovered/Resolved]
  - Malaise [Unknown]
  - Arthralgia [Unknown]
  - Sepsis [Recovering/Resolving]

NARRATIVE: CASE EVENT DATE: 20150812
